FAERS Safety Report 8075232-4 (Version None)
Quarter: 2011Q4

REPORT INFORMATION
  Report Type: 
  Country: None (occurrence: None)
  Receive Date: 20111227
  Receipt Date: 20111108
  Transmission Date: 20120403
  Serious: No
  Sender: FDA-Public Use
  Company Number: PHEH2011US008882

PATIENT
  Sex: Female

DRUGS (2)
  1. GILENYA [Suspect]
  2. NUTRITION SUPPLEMENTS (NUTRITION SUPPLEMENTS) [Concomitant]

REACTIONS (2)
  - ABDOMINAL PAIN UPPER [None]
  - HEADACHE [None]
